FAERS Safety Report 20987251 (Version 1)
Quarter: 2022Q2

REPORT INFORMATION
  Report Type: Spontaneous
  Country: FR (occurrence: FR)
  Receive Date: 20220621
  Receipt Date: 20220621
  Transmission Date: 20220721
  Serious: Yes (Other)
  Sender: FDA-Public Use
  Company Number: None

PATIENT
  Age: 57 Year
  Sex: Male

DRUGS (8)
  1. KISQALI [Suspect]
     Active Substance: RIBOCICLIB
     Indication: Breast cancer
     Dosage: 600 MG, QD (3 COMPRIM?S DE 200 MG/JOUR)
     Route: 048
     Dates: start: 20220204, end: 20220224
  2. KISQALI [Suspect]
     Active Substance: RIBOCICLIB
     Dosage: 200 MG, QD 91 COMPRIM? DE 200 MG/JOUR)
     Route: 048
     Dates: start: 20220225, end: 20220325
  3. KISQALI [Suspect]
     Active Substance: RIBOCICLIB
     Dosage: 400 MG, QD (2 COMPRIM?S DE 200 MG/JOUR)
     Route: 048
     Dates: start: 20220326
  4. PRAVASTATIN SODIUM [Concomitant]
     Active Substance: PRAVASTATIN SODIUM
     Indication: Dyslipidaemia
     Dosage: 20 MG, QD- (1 CP/JOUR)
     Route: 048
     Dates: start: 20220202
  5. MEBEVERINE HYDROCHLORIDE [Concomitant]
     Active Substance: MEBEVERINE HYDROCHLORIDE
     Indication: Dyspepsia
     Dosage: 200 MG, Q12H (1 X200MG LE MATIN 1X 200 MG LE SOIR)
     Route: 048
     Dates: start: 20211122
  6. GAVISCON [Concomitant]
     Active Substance: ALUMINUM HYDROXIDE\MAGNESIUM CARBONATE
     Indication: Gastrooesophageal reflux disease
     Dosage: 10 ML (1 SACHET X3 / JOUR SI BESOIN)
     Route: 048
     Dates: start: 20220202
  7. LETROZOLE [Concomitant]
     Active Substance: LETROZOLE
     Indication: Breast cancer
     Dosage: 2.5 MG, QD (1 CP 2.5 MG/JOUR)
     Route: 048
     Dates: start: 20220204
  8. CANDESARTAN [Concomitant]
     Active Substance: CANDESARTAN
     Indication: Hypertension
     Dosage: 4 MG, QD (1 CP 4MG/JOUR)
     Route: 048
     Dates: start: 20211122

REACTIONS (1)
  - Oesophageal pain [Recovered/Resolved]

NARRATIVE: CASE EVENT DATE: 20220224
